FAERS Safety Report 26137474 (Version 1)
Quarter: 2025Q4

REPORT INFORMATION
  Report Type: Report from Study
  Country: BR (occurrence: BR)
  Receive Date: 20251209
  Receipt Date: 20251209
  Transmission Date: 20260117
  Serious: Yes (Other)
  Sender: BIOGEN
  Company Number: BR-BIOGEN-2094060

PATIENT
  Sex: Female
  Weight: 65 kg

DRUGS (2)
  1. TYSABRI [Suspect]
     Active Substance: NATALIZUMAB
     Indication: Multiple sclerosis
     Dosage: DOSE REPORTED AS 1 VIAL
     Dates: start: 201708
  2. Ancoron (Cloridrato de Amiodarona) [Concomitant]
     Indication: Arrhythmia

REACTIONS (2)
  - Tuberculosis [Unknown]
  - Memory impairment [Unknown]
